FAERS Safety Report 21792724 (Version 1)
Quarter: 2022Q4

REPORT INFORMATION
  Report Type: Report from Study
  Country: US (occurrence: US)
  Receive Date: 20221229
  Receipt Date: 20221229
  Transmission Date: 20230113
  Serious: Yes (Hospitalization)
  Sender: FDA-Public Use
  Company Number: US-GBT-018919

PATIENT
  Age: 17 Year
  Sex: Female

DRUGS (9)
  1. OXBRYTA [Suspect]
     Active Substance: VOXELOTOR
     Dates: start: 20210820
  2. cholecalciferol, vitamin D3 [Concomitant]
     Indication: Product used for unknown indication
     Route: 048
     Dates: start: 20191219
  3. MS CONTIN [Concomitant]
     Active Substance: MORPHINE SULFATE
     Indication: Sickle cell disease
     Dosage: 12 EXTENDED RELEASE TABLET BID PRN
     Route: 048
     Dates: start: 20190319
  4. hydrocodone-acetaminophen (locrcet), [Concomitant]
     Indication: Sickle cell disease
     Dosage: 5-325 MG TABLET Q6H PRN
     Route: 048
     Dates: start: 20180816
  5. oxycodone IR (roxicodone) 10 mg immediate release tablet [Concomitant]
     Indication: Sickle cell disease
     Dosage: Q4H PRN
     Route: 048
     Dates: start: 20201117
  6. folic acid (folvite) 1 mg tablet [Concomitant]
     Indication: Sickle cell disease
     Route: 048
     Dates: start: 20120414
  7. cyclobenzaprine (flexeril) 5 mg tablet [Concomitant]
     Indication: Sickle cell disease
     Dosage: TID PRN
     Route: 048
     Dates: start: 20200809
  8. hydroxyurea (hydrea) 500 mg capsule [Concomitant]
     Indication: Sickle cell disease
     Dosage: 1000 M-F, 1500 SS
     Route: 048
     Dates: start: 20200504
  9. ibuprofen (motrin) 400 mg tablet [Concomitant]
     Indication: Sickle cell disease
     Dosage: Q6H PRN
     Route: 048
     Dates: start: 20210520

REACTIONS (1)
  - Tooth impacted [Recovered/Resolved with Sequelae]

NARRATIVE: CASE EVENT DATE: 20221115
